FAERS Safety Report 5235980-8 (Version None)
Quarter: 2007Q1

REPORT INFORMATION
  Report Type: 
  Country: None (occurrence: None)
  Receive Date: 20070212
  Receipt Date: 20061211
  Transmission Date: 20070707
  Serious: Yes (Other)
  Sender: FDA-Public Use
  Company Number: MX-ELI_LILLY_AND_COMPANY-MX200608004400

PATIENT
  Age: 33 Year
  Sex: Female

DRUGS (6)
  1. HUMALOG MIX 50/50 [Suspect]
     Indication: DIABETES MELLITUS NON-INSULIN-DEPENDENT
     Dosage: 5 IU AND 2 IU
     Route: 058
     Dates: start: 20060817
  2. HUMALOG MIX 50/50 [Suspect]
     Dosage: 5 IU AND 2 IU
     Route: 058
     Dates: start: 20060817
  3. HUMULIN N [Suspect]
     Dosage: 20 IU, UNK
  4. HUMULIN N [Suspect]
     Dosage: 10 IU, EACH EVENING
     Dates: start: 20060525
  5. VITAMINS [Concomitant]
     Dates: end: 20061201
  6. CALCIUM [Concomitant]

REACTIONS (4)
  - DRUG EXPOSURE DURING PREGNANCY [None]
  - OEDEMA PERIPHERAL [None]
  - PARAESTHESIA [None]
  - PRE-ECLAMPSIA [None]
